FAERS Safety Report 7801612-5 (Version None)
Quarter: 2011Q4

REPORT INFORMATION
  Report Type: 
  Country: None (occurrence: None)
  Receive Date: 20111005
  Receipt Date: 20110921
  Transmission Date: 20120403
  Serious: Yes (Other)
  Sender: FDA-Public Use
  Company Number: 1000024326

PATIENT
  Age: 78 Year
  Sex: Female

DRUGS (7)
  1. GLICLAZIDE (GLICLAZIDE) [Concomitant]
  2. PANTOPRAZOLE [Concomitant]
  3. CITALOPRAM HYDROBROMIDE [Suspect]
     Dosage: 30 MG (30 MG, 1 IN 1 D), ORAL
     Route: 048
     Dates: end: 20060328
  4. ISOSORBIDE MONONITRATE [Concomitant]
  5. TEMAZEPAM [Concomitant]
  6. GLYCERYL TINITRATE (GLYCERYL TRINITRATE) [Concomitant]
  7. ASPIRIN [Concomitant]

REACTIONS (5)
  - ELECTROCARDIOGRAM QT PROLONGED [None]
  - ARRHYTHMIA SUPRAVENTRICULAR [None]
  - SICK SINUS SYNDROME [None]
  - TORSADE DE POINTES [None]
  - SINUS BRADYCARDIA [None]
